FAERS Safety Report 5134041-6 (Version None)
Quarter: 2006Q4

REPORT INFORMATION
  Report Type: 
  Country: None (occurrence: None)
  Receive Date: 20061019
  Receipt Date: 20061006
  Transmission Date: 20070319
  Serious: Yes (Hospitalization, Other)
  Sender: FDA-Public Use
  Company Number: CHWYE150706OCT06

PATIENT
  Age: 30 Year
  Sex: Female

DRUGS (7)
  1. EFFEXOR [Suspect]
     Dosage: 150 MG 1X PER 1 DAY ORAL
     Route: 048
     Dates: start: 20060530, end: 20060605
  2. QUILONORM (LITHIUM ACETATE, , 0) [Suspect]
     Dosage: SEE IMAGE
     Route: 048
     Dates: start: 20060530, end: 20060601
  3. QUILONORM (LITHIUM ACETATE, , 0) [Suspect]
     Dosage: SEE IMAGE
     Route: 048
     Dates: start: 20060602, end: 20060607
  4. VALPROATE SODIUM [Concomitant]
  5. VALPROATE SODIUM [Concomitant]
  6. NALTREXONE HCL [Concomitant]
  7. VOLTAREN [Concomitant]

REACTIONS (5)
  - DIZZINESS [None]
  - DRUG INTERACTION [None]
  - HYPERHIDROSIS [None]
  - PARKINSON'S DISEASE [None]
  - THERAPEUTIC AGENT TOXICITY [None]
